FAERS Safety Report 15943429 (Version 1)
Quarter: 2019Q1

REPORT INFORMATION
  Report Type: Spontaneous
  Country: US (occurrence: US)
  Receive Date: 20190122
  Receipt Date: 20190122
  Transmission Date: 20190417
  Serious: No
  Sender: FDA-Public Use
  Company Number: None

PATIENT
  Age: 55 Year
  Weight: 75.75 kg

DRUGS (1)
  1. TALTZ [Suspect]
     Active Substance: IXEKIZUMAB
     Indication: PSORIASIS
     Dosage: OTHER FREQUENCY:EVERY 2 WEEKS ATWK;4-12 AS DIRECTED?
     Route: 058
     Dates: start: 201812

REACTIONS (2)
  - Pain [None]
  - Pain in extremity [None]
